FAERS Safety Report 8234170-4 (Version None)
Quarter: 2012Q1

REPORT INFORMATION
  Report Type: 
  Country: None (occurrence: None)
  Receive Date: 20120326
  Receipt Date: 20120316
  Transmission Date: 20120608
  Serious: Yes (Death, Life-Threatening, Other)
  Sender: FDA-Public Use
  Company Number: JP-GENZYME-THYM-1002556

PATIENT
  Sex: Male
  Weight: 41 kg

DRUGS (135)
  1. TEICOPLANIN [Concomitant]
     Indication: INFECTION PROPHYLAXIS
     Dosage: UNK
     Route: 065
     Dates: start: 20100413, end: 20100426
  2. GLUTATHIONE [Concomitant]
     Indication: PROPHYLAXIS
     Dosage: UNK
     Route: 065
     Dates: start: 20100413, end: 20100609
  3. MICAFUNGIN SODIUM [Concomitant]
     Indication: INFECTION PROPHYLAXIS
     Dosage: UNK
     Route: 065
     Dates: start: 20100413, end: 20100423
  4. MINOCYCLINE HYDROCHLORIDE [Concomitant]
     Indication: INFECTION PROPHYLAXIS
     Dosage: UNK
     Route: 065
     Dates: start: 20100418, end: 20100506
  5. ACYCLOVIR [Concomitant]
     Dosage: UNK
     Route: 065
     Dates: start: 20101028, end: 20101202
  6. METHOTREXATE [Concomitant]
     Indication: PROPHYLAXIS AGAINST GRAFT VERSUS HOST DISEASE
     Dosage: UNK
     Route: 065
     Dates: start: 20100423, end: 20100423
  7. PENTAMIDINE ISETHIONATE [Concomitant]
     Dosage: UNK
     Route: 065
     Dates: start: 20100709, end: 20100709
  8. IRRADIATED ERYTHROCYTE CONCENTRATE [Concomitant]
     Dosage: 2 U, UNK
     Route: 065
     Dates: start: 20100428, end: 20100428
  9. CIPROFLOXACIN [Concomitant]
     Indication: INFECTION PROPHYLAXIS
     Dosage: UNK
     Route: 065
     Dates: start: 20101119, end: 20101201
  10. THYMOGLOBULIN [Suspect]
     Indication: BONE MARROW CONDITIONING REGIMEN
     Dosage: 55 MG, QD
     Route: 042
     Dates: start: 20100420, end: 20100421
  11. ETOPOSIDE [Concomitant]
     Indication: BONE MARROW CONDITIONING REGIMEN
     Dosage: UNK
     Route: 065
     Dates: start: 20101030, end: 20101030
  12. IMIPEM [Concomitant]
     Indication: INFECTION PROPHYLAXIS
     Dosage: UNK
     Route: 065
     Dates: start: 20100413, end: 20100421
  13. IMIPEM [Concomitant]
     Dosage: UNK
     Route: 065
     Dates: start: 20100505, end: 20100514
  14. GRANISETRON HCL [Concomitant]
     Dosage: UNK
     Route: 065
     Dates: start: 20101001
  15. MELPHALAN HYDROCHLORIDE [Concomitant]
     Indication: BONE MARROW CONDITIONING REGIMEN
     Dosage: UNK
     Route: 065
     Dates: start: 20100419, end: 20100420
  16. MEROPENEM [Concomitant]
     Dosage: UNK
     Route: 065
     Dates: start: 20101028, end: 20101214
  17. PREDNISOLONE SODIUM SUCCINATE INJ [Concomitant]
     Indication: PROPHYLAXIS AGAINST GRAFT VERSUS HOST DISEASE
     Dosage: UNK
     Route: 065
     Dates: start: 20100422, end: 20100520
  18. PREDNISOLONE SODIUM SUCCINATE INJ [Concomitant]
     Indication: CAPILLARY LEAK SYNDROME
     Dosage: UNK
     Route: 065
     Dates: start: 20100530, end: 20100603
  19. POLYMYXIN B SULFATE [Concomitant]
     Indication: PRODUCT USED FOR UNKNOWN INDICATION
     Dosage: UNK
     Route: 065
     Dates: start: 20101028, end: 20101119
  20. IRRADIATED PLATELET CONCENTRATE [Concomitant]
     Indication: ACUTE LYMPHOCYTIC LEUKAEMIA
     Dosage: 10 U, UNK
     Route: 065
     Dates: start: 20100414, end: 20100414
  21. IRRADIATED PLATELET CONCENTRATE [Concomitant]
     Dosage: 10 U, UNK
     Route: 065
     Dates: start: 20100908, end: 20100915
  22. IRRADIATED PLATELET CONCENTRATE [Concomitant]
     Dosage: 10 U, UNK
     Route: 065
     Dates: start: 20100921, end: 20101021
  23. IRRADIATED ERYTHROCYTE CONCENTRATE [Concomitant]
     Dosage: 2 U, UNK
     Route: 065
     Dates: start: 20101014, end: 20101014
  24. SPIRONOLACTONE [Concomitant]
     Indication: PROPHYLAXIS
     Dosage: UNK
     Route: 065
     Dates: start: 20101028, end: 20101030
  25. ASPARTATE POTASSIUM [Concomitant]
     Indication: MINERAL SUPPLEMENTATION
     Dosage: UNK
     Route: 065
     Dates: start: 20101028, end: 20101030
  26. HUMAN RED BLOOD CELLS [Concomitant]
     Indication: BONE MARROW CONDITIONING REGIMEN
     Dosage: UNK
     Route: 065
     Dates: start: 20101110, end: 20101110
  27. CYTARABINE [Concomitant]
     Indication: BONE MARROW TRANSPLANT
     Dosage: UNK
     Route: 065
     Dates: start: 20100417, end: 20100418
  28. FAMOTIDINE [Concomitant]
     Indication: PROPHYLAXIS
     Dosage: UNK
     Route: 065
     Dates: start: 20100413, end: 20100519
  29. GLUTATHIONE [Concomitant]
     Dosage: UNK
     Route: 065
     Dates: start: 20101028, end: 20101214
  30. FUROSEMIDE [Concomitant]
     Dosage: UNK
     Route: 065
     Dates: start: 20100930, end: 20101006
  31. ACETAZOLAMIDE SODIUM [Concomitant]
     Indication: INFECTION PROPHYLAXIS
     Dosage: UNK
     Route: 065
     Dates: start: 20100416, end: 20100419
  32. ACETAZOLAMIDE SODIUM [Concomitant]
     Indication: PROPHYLAXIS
     Dosage: UNK
     Route: 065
     Dates: start: 20100908, end: 20100913
  33. TACROLIMUS [Concomitant]
     Indication: GRAFT VERSUS HOST DISEASE
     Dosage: UNK
     Route: 065
     Dates: start: 20100421, end: 20100516
  34. METHOTREXATE [Concomitant]
     Dosage: UNK
     Route: 065
     Dates: start: 20101106, end: 20101106
  35. VANCOMYCIN HYDROCHLORIDE [Concomitant]
     Indication: PNEUMONIA
     Dosage: UNK
     Route: 065
     Dates: start: 20100413, end: 20100514
  36. URSODIOL [Concomitant]
     Dosage: UNK
     Route: 065
     Dates: start: 20101028, end: 20110225
  37. IRRADIATED PLATELET CONCENTRATE [Concomitant]
     Dosage: 10 U, UNK
     Route: 065
     Dates: start: 20100429, end: 20100503
  38. IRRADIATED ERYTHROCYTE CONCENTRATE [Concomitant]
     Dosage: 2 U, UNK
     Route: 065
     Dates: start: 20101022, end: 20101022
  39. ANTI-THYMOCYTE GLOBULIN EQUINE NOS [Concomitant]
     Indication: PREMEDICATION
     Dosage: UNK
     Route: 065
     Dates: start: 20101031
  40. ACYCLOVIR [Concomitant]
     Dosage: UNK
     Route: 065
     Dates: start: 20101028, end: 20101202
  41. HUMAN RED BLOOD CELLS [Concomitant]
     Dosage: UNK
     Route: 065
     Dates: start: 20101127, end: 20101127
  42. THYMOGLOBULIN [Suspect]
     Dosage: 56 MG, QD
     Route: 042
     Dates: start: 20101103, end: 20101104
  43. FAMOTIDINE [Concomitant]
     Dosage: UNK
     Route: 065
     Dates: start: 20110131, end: 20110313
  44. BUSULFAN [Concomitant]
     Indication: BONE MARROW CONDITIONING REGIMEN
     Dosage: UNK
     Route: 065
     Dates: start: 20100413, end: 20100417
  45. TEICOPLANIN [Concomitant]
     Indication: PNEUMONIA
     Dosage: UNK
     Route: 065
     Dates: start: 20101028, end: 20101117
  46. GRANISETRON HCL [Concomitant]
     Indication: PROPHYLAXIS OF NAUSEA AND VOMITING
     Dosage: UNK
     Route: 065
     Dates: start: 20100413, end: 20100424
  47. STRONGER NEO MINOPHAGEN C [Concomitant]
     Dosage: UNK
     Route: 065
     Dates: start: 20101001
  48. DALTEPARIN SODIUM [Concomitant]
     Indication: ANTICOAGULANT THERAPY
     Dosage: UNK
     Route: 065
     Dates: start: 20100413, end: 20100526
  49. DALTEPARIN SODIUM [Concomitant]
     Dosage: UNK
     Route: 065
     Dates: start: 20101028, end: 20101207
  50. MELPHALAN HYDROCHLORIDE [Concomitant]
     Dosage: UNK
     Route: 065
     Dates: start: 20101101, end: 20101102
  51. TACROLIMUS [Concomitant]
     Indication: PROPHYLAXIS AGAINST GRAFT VERSUS HOST DISEASE
     Dosage: UNK
     Route: 065
     Dates: start: 20100517, end: 20100715
  52. TACROLIMUS [Concomitant]
     Dosage: UNK
     Route: 065
     Dates: start: 20101107, end: 20101129
  53. TACROLIMUS [Concomitant]
     Dosage: UNK
     Route: 065
     Dates: start: 20101130
  54. PREDNISOLONE SODIUM SUCCINATE INJ [Concomitant]
     Dosage: UNK
     Route: 065
     Dates: start: 20101125, end: 20101214
  55. VORICONAZOLE [Concomitant]
     Indication: INFECTION PROPHYLAXIS
     Dosage: UNK
     Route: 065
     Dates: start: 20100424, end: 20100506
  56. CARBENIN [Concomitant]
     Dosage: UNK
     Route: 065
     Dates: start: 20101202, end: 20101207
  57. IRRADIATED ERYTHROCYTE CONCENTRATE [Concomitant]
     Dosage: 2 U, UNK
     Route: 065
     Dates: start: 20100918, end: 20100918
  58. ANTITHROMBIN III HUMAN [Concomitant]
     Dosage: UNK
     Route: 065
     Dates: start: 20110217, end: 20110218
  59. DEXAMETHASONE [Concomitant]
     Indication: ACUTE LYMPHOCYTIC LEUKAEMIA
     Dosage: UNK
     Route: 065
     Dates: start: 20101031, end: 20101115
  60. FAMOTIDINE [Concomitant]
     Dosage: UNK
     Route: 065
     Dates: start: 20100521
  61. GLUTATHIONE [Concomitant]
     Dosage: UNK
     Route: 065
     Dates: start: 20100908, end: 20100924
  62. MEROPENEM [Concomitant]
     Indication: PNEUMONIA
     Dosage: UNK
     Route: 065
     Dates: start: 20101119
  63. ACYCLOVIR [Concomitant]
     Indication: INFECTION PROPHYLAXIS
     Dosage: UNK
     Route: 065
     Dates: start: 20100423, end: 20100522
  64. FILGRASTIM [Concomitant]
     Dosage: UNK
     Route: 065
     Dates: start: 20101028, end: 20101119
  65. PENTAMIDINE ISETHIONATE [Concomitant]
     Dosage: UNK
     Route: 065
     Dates: start: 20100805, end: 20100805
  66. PENTAMIDINE ISETHIONATE [Concomitant]
     Dosage: UNK
     Route: 065
     Dates: start: 20100928, end: 20100928
  67. CARBENIN [Concomitant]
     Indication: INFECTION PROPHYLAXIS
     Dosage: UNK
     Route: 065
     Dates: start: 20100907
  68. URSODIOL [Concomitant]
     Indication: PROPHYLAXIS
     Dosage: UNK
     Route: 065
     Dates: start: 20100413, end: 20100805
  69. SODIUM ALGINATE [Concomitant]
     Indication: PROPHYLAXIS AGAINST GASTROINTESTINAL ULCER
     Dosage: UNK
     Route: 065
     Dates: start: 20101028, end: 20101218
  70. FAMOTIDINE [Concomitant]
     Dosage: UNK
     Route: 065
     Dates: start: 20101028, end: 20101214
  71. FUROSEMIDE [Concomitant]
     Dosage: UNK
     Route: 065
     Dates: start: 20101028, end: 20101122
  72. FILGRASTIM [Concomitant]
     Indication: PROPHYLAXIS
     Dosage: UNK
     Route: 065
     Dates: start: 20100423, end: 20100507
  73. METHOTREXATE [Concomitant]
     Dosage: UNK
     Route: 065
     Dates: start: 20101108, end: 20101108
  74. VORICONAZOLE [Concomitant]
     Indication: PNEUMONIA
     Dosage: UNK
     Route: 065
     Dates: start: 20100507, end: 20101015
  75. VORICONAZOLE [Concomitant]
     Dosage: UNK
     Route: 065
     Dates: start: 20101028, end: 20101119
  76. PENTAMIDINE ISETHIONATE [Concomitant]
     Indication: ANTIFUNGAL PROPHYLAXIS
     Dosage: UNK
     Route: 065
     Dates: start: 20100506, end: 20100506
  77. PENTAMIDINE ISETHIONATE [Concomitant]
     Dosage: UNK
     Route: 065
     Dates: start: 20100603, end: 20100603
  78. PHENYTOIN [Concomitant]
     Indication: CONVULSION PROPHYLAXIS
     Dosage: UNK
     Route: 065
     Dates: start: 20100414, end: 20100417
  79. LEVOFLOXACIN [Concomitant]
     Indication: INFECTION PROPHYLAXIS
     Dosage: UNK
     Route: 065
     Dates: start: 20100621
  80. IRRADIATED PLATELET CONCENTRATE [Concomitant]
     Dosage: 10 U, UNK
     Route: 065
     Dates: start: 20100505, end: 20100511
  81. IRRADIATED PLATELET CONCENTRATE [Concomitant]
     Dosage: 10 U, UNK
     Route: 065
     Dates: start: 20100520, end: 20100520
  82. IRRADIATED ERYTHROCYTE CONCENTRATE [Concomitant]
     Indication: ACUTE LYMPHOCYTIC LEUKAEMIA
     Dosage: 2 U, UNK
     Route: 065
     Dates: start: 20100416, end: 20100416
  83. REBAMIPIDE [Concomitant]
     Indication: PROPHYLAXIS AGAINST GASTROINTESTINAL ULCER
     Dosage: UNK
     Route: 065
     Dates: start: 20101028
  84. POLAPREZINC [Concomitant]
     Indication: PROPHYLAXIS AGAINST GASTROINTESTINAL ULCER
     Dosage: UNK
     Route: 065
     Dates: start: 20101106, end: 20111124
  85. PLATELETS [Concomitant]
     Indication: BONE MARROW CONDITIONING REGIMEN
  86. HUMAN RED BLOOD CELLS [Concomitant]
     Indication: ACUTE LYMPHOCYTIC LEUKAEMIA
     Dosage: UNK
     Route: 065
     Dates: start: 20101101, end: 20101101
  87. CYTARABINE [Concomitant]
     Indication: ACUTE LYMPHOCYTIC LEUKAEMIA
     Dosage: UNK
     Route: 065
     Dates: start: 20100325, end: 20100412
  88. ETOPOSIDE [Concomitant]
     Indication: ACUTE LYMPHOCYTIC LEUKAEMIA
     Dosage: UNK
     Route: 065
     Dates: start: 20100325, end: 20100412
  89. GRANISETRON HCL [Concomitant]
     Dosage: UNK
     Route: 065
     Dates: start: 20101028, end: 20101115
  90. HYDROCORTISONE SODIUM SUCCINATE [Concomitant]
     Indication: PROPHYLAXIS OF NAUSEA AND VOMITING
     Dosage: UNK
     Route: 065
     Dates: start: 20100413, end: 20100424
  91. HYDROCORTISONE SODIUM SUCCINATE [Concomitant]
     Indication: PREMEDICATION
     Dosage: UNK
     Route: 065
     Dates: start: 20101028, end: 20101119
  92. STRONGER NEO MINOPHAGEN C [Concomitant]
     Indication: PROPHYLAXIS
     Dosage: UNK
     Route: 065
     Dates: start: 20100413, end: 20100609
  93. STRONGER NEO MINOPHAGEN C [Concomitant]
     Dosage: UNK
     Route: 065
     Dates: start: 20101028, end: 20101214
  94. GLUTATHIONE [Concomitant]
     Dosage: UNK
     Route: 065
     Dates: start: 20101001
  95. MICAFUNGIN SODIUM [Concomitant]
     Indication: PNEUMONIA
     Dosage: UNK
     Route: 065
     Dates: start: 20101028, end: 20101213
  96. FUROSEMIDE [Concomitant]
     Indication: PROPHYLAXIS
     Dosage: UNK
     Route: 065
     Dates: start: 20100414, end: 20100503
  97. SODIUM BICARBONATE [Concomitant]
     Indication: PROPHYLAXIS
     Dosage: UNK
     Route: 065
     Dates: start: 20100416, end: 20100419
  98. SODIUM BICARBONATE [Concomitant]
     Dosage: UNK
     Route: 065
     Dates: start: 20100907, end: 20100913
  99. METHYLPREDNISOLONE SODIUM SUCCINATE [Concomitant]
     Indication: PREMEDICATION
     Dosage: UNK
     Route: 065
     Dates: start: 20101103, end: 20101104
  100. MEROPENEM [Concomitant]
     Indication: INFECTION PROPHYLAXIS
     Dosage: UNK
     Route: 065
     Dates: start: 20100421, end: 20100504
  101. VANCOMYCIN HYDROCHLORIDE [Concomitant]
     Indication: INFECTION PROPHYLAXIS
     Dosage: UNK
     Route: 065
     Dates: start: 20100426, end: 20100509
  102. VANCOMYCIN HYDROCHLORIDE [Concomitant]
     Dosage: UNK
     Route: 065
     Dates: start: 20101028, end: 20101119
  103. ETHYL ICOSAPENTATE [Concomitant]
     Indication: PROPHYLAXIS
     Dosage: UNK
     Route: 065
     Dates: start: 20100413, end: 20100709
  104. ETHYL ICOSAPENTATE [Concomitant]
     Dosage: UNK
     Route: 065
     Dates: start: 20101028, end: 20110225
  105. PREDNISOLONE [Concomitant]
     Indication: PROPHYLAXIS AGAINST GRAFT VERSUS HOST DISEASE
     Dosage: UNK
     Route: 065
     Dates: start: 20100521, end: 20100907
  106. IRRADIATED PLATELET CONCENTRATE [Concomitant]
     Dosage: 10 U, UNK
     Route: 065
     Dates: start: 20100421, end: 20100427
  107. IRRADIATED PLATELET CONCENTRATE [Concomitant]
     Dosage: 10 U, UNK
     Route: 065
     Dates: start: 20100513, end: 20100516
  108. IRRADIATED ERYTHROCYTE CONCENTRATE [Concomitant]
     Dosage: 2 U, UNK
     Route: 065
     Dates: start: 20100420, end: 20100420
  109. IRRADIATED ERYTHROCYTE CONCENTRATE [Concomitant]
     Dosage: 2 U, UNK
     Route: 065
     Dates: start: 20100512, end: 20100512
  110. IRRADIATED ERYTHROCYTE CONCENTRATE [Concomitant]
     Dosage: 2 U, UNK
     Route: 065
     Dates: start: 20100629, end: 20100629
  111. IRRADIATED ERYTHROCYTE CONCENTRATE [Concomitant]
     Dosage: 2 U, UNK
     Route: 065
     Dates: start: 20100928, end: 20100928
  112. HYDROXYZINE HYDROCHLORIDE [Concomitant]
     Indication: PREMEDICATION
     Dosage: UNK
     Dates: start: 20101103, end: 20101104
  113. CEFOZOPRAN HYDROCHLORIDE [Concomitant]
     Indication: INFECTION PROPHYLAXIS
     Dosage: UNK
     Route: 065
     Dates: start: 20101117, end: 20101119
  114. PLATELETS [Concomitant]
     Indication: ACUTE LYMPHOCYTIC LEUKAEMIA
     Dosage: UNK
     Route: 065
     Dates: start: 20101029, end: 20101130
  115. HUMAN RED BLOOD CELLS [Concomitant]
     Dosage: UNK
     Route: 065
     Dates: start: 20101119, end: 20101119
  116. UNKNOWN DRUG [Concomitant]
     Indication: PNEUMONIA
     Dosage: UNK
     Route: 065
     Dates: start: 20101029, end: 20101112
  117. FLUDARA [Concomitant]
     Indication: BONE MARROW CONDITIONING REGIMEN
     Dosage: UNK
     Route: 065
     Dates: start: 20101031, end: 20101104
  118. GRANISETRON HCL [Concomitant]
     Dosage: UNK
     Route: 065
     Dates: start: 20100908, end: 20100923
  119. STRONGER NEO MINOPHAGEN C [Concomitant]
     Dosage: UNK
     Route: 065
     Dates: start: 20100908, end: 20100924
  120. METHYLPREDNISOLONE SODIUM SUCCINATE [Concomitant]
     Indication: ACUTE LYMPHOCYTIC LEUKAEMIA
     Dosage: UNK
     Route: 065
     Dates: start: 20100420, end: 20100421
  121. METHOTREXATE [Concomitant]
     Dosage: UNK
     Route: 065
     Dates: start: 20100424, end: 20100424
  122. METHOTREXATE [Concomitant]
     Dosage: UNK
     Route: 065
     Dates: start: 20100428, end: 20100428
  123. METHOTREXATE [Concomitant]
     Dosage: UNK
     Route: 065
     Dates: start: 20101111, end: 20101111
  124. VORICONAZOLE [Concomitant]
     Dosage: UNK
     Route: 065
     Dates: start: 20101119
  125. POLYMYXIN B SULFATE [Concomitant]
     Indication: INFECTION PROPHYLAXIS
     Dosage: UNK
     Route: 065
     Dates: start: 20100413, end: 20100521
  126. PREDNISOLONE [Concomitant]
     Dosage: UNK
     Route: 065
     Dates: start: 20100521, end: 20100625
  127. IRRADIATED PLATELET CONCENTRATE [Concomitant]
     Dosage: 10 U, UNK
     Route: 065
     Dates: start: 20100417, end: 20100419
  128. IRRADIATED ERYTHROCYTE CONCENTRATE [Concomitant]
     Dosage: 2 U, UNK
     Route: 065
     Dates: start: 20100504, end: 20100504
  129. IRRADIATED ERYTHROCYTE CONCENTRATE [Concomitant]
     Dosage: 2 U, UNK
     Route: 065
     Dates: start: 20101005, end: 20101005
  130. AMINO ACIDS NOS W [Concomitant]
     Indication: MEDICAL DIET
     Dosage: UNK
     Route: 065
     Dates: start: 20101107, end: 20101128
  131. ANTITHROMBIN III HUMAN [Concomitant]
     Indication: PROPHYLAXIS
     Dosage: UNK
     Route: 065
     Dates: start: 20101118, end: 20101120
  132. LOPERAMIDE HYDROCHLORIDE [Concomitant]
     Indication: BONE MARROW CONDITIONING REGIMEN
     Dosage: UNK
     Route: 065
     Dates: start: 20101102, end: 20110311
  133. HUMAN RED BLOOD CELLS [Concomitant]
     Dosage: UNK
     Route: 065
     Dates: start: 20101111, end: 20101111
  134. PARENTERAL [Concomitant]
     Indication: MEDICAL DIET
     Dosage: UNK
     Route: 065
     Dates: start: 20110218, end: 20110303
  135. GLYCYRON [Concomitant]
     Indication: PROPHYLAXIS
     Dosage: UNK
     Route: 065
     Dates: start: 20110226, end: 20110317

REACTIONS (17)
  - CHRONIC GRAFT VERSUS HOST DISEASE [None]
  - HEPATIC FUNCTION ABNORMAL [None]
  - HYPERTENSION [None]
  - STOMATITIS [None]
  - GRAFT VERSUS HOST DISEASE IN INTESTINE [None]
  - SEPTIC SHOCK [None]
  - CYSTITIS HAEMORRHAGIC [None]
  - DIARRHOEA [None]
  - ENGRAFT FAILURE [None]
  - OBLITERATIVE BRONCHIOLITIS [None]
  - ACUTE LYMPHOCYTIC LEUKAEMIA RECURRENT [None]
  - CAPILLARY LEAK SYNDROME [None]
  - HYPERTRIGLYCERIDAEMIA [None]
  - GASTRITIS [None]
  - TRANSIENT ISCHAEMIC ATTACK [None]
  - PYREXIA [None]
  - GRAFT VERSUS HOST DISEASE IN SKIN [None]
